FAERS Safety Report 7334402-0 (Version None)
Quarter: 2011Q1

REPORT INFORMATION
  Report Type: 
  Country: None (occurrence: None)
  Receive Date: 20110302
  Receipt Date: 20110302
  Transmission Date: 20110831
  Serious: Yes (Hospitalization)
  Sender: FDA-Public Use
  Company Number: None

PATIENT
  Age: 41 Year
  Sex: Male
  Weight: 139.5 kg

DRUGS (2)
  1. LITHIUM CARBONATE [Suspect]
     Dosage: 900 MG HS PO
     Route: 048
     Dates: start: 20100816, end: 20110227
  2. LITHIUM CARBONATE [Suspect]
     Dosage: 600 MG AM PO
     Route: 048
     Dates: start: 20100816, end: 20110227

REACTIONS (6)
  - ATAXIA [None]
  - VISION BLURRED [None]
  - DYSARTHRIA [None]
  - AMNESIA [None]
  - CONFUSIONAL STATE [None]
  - TREMOR [None]
